FAERS Safety Report 6662928-1 (Version None)
Quarter: 2010Q2

REPORT INFORMATION
  Report Type: 
  Country: None (occurrence: None)
  Receive Date: 20100401
  Receipt Date: 20100329
  Transmission Date: 20101027
  Serious: Yes (Other)
  Sender: FDA-Public Use
  Company Number: US-JNJFOC-20090600127

PATIENT
  Sex: Female

DRUGS (3)
  1. LEVAQUIN [Suspect]
     Indication: PNEUMONIA
  2. LEVAQUIN [Suspect]
     Indication: ASTHMA
  3. PREDNISONE [Suspect]
     Indication: ASTHMA
     Route: 065

REACTIONS (5)
  - INJURY [None]
  - JOINT INJURY [None]
  - JOINT SPRAIN [None]
  - TENDON RUPTURE [None]
  - TENDONITIS [None]
